FAERS Safety Report 15584065 (Version 1)
Quarter: 2018Q4

REPORT INFORMATION
  Report Type: Spontaneous
  Country: EE (occurrence: EE)
  Receive Date: 20181104
  Receipt Date: 20181104
  Transmission Date: 20190205
  Serious: Yes (Hospitalization, Other)
  Sender: FDA-Public Use
  Company Number: EE-009507513-1810EST013498

PATIENT
  Age: 60 Year
  Sex: Male

DRUGS (3)
  1. PRENESSA [Concomitant]
     Active Substance: PERINDOPRIL
     Indication: HYPERTENSION
     Dosage: 2 MILLIGRAM, QD
     Route: 048
  2. CIPROFLOXACIN. [Concomitant]
     Active Substance: CIPROFLOXACIN
     Indication: INFECTION
     Dosage: 500 MILLIGRAM, Q12H
     Route: 048
     Dates: start: 20180704, end: 20180704
  3. KEYTRUDA [Suspect]
     Active Substance: PEMBROLIZUMAB
     Indication: LUNG NEOPLASM MALIGNANT
     Dosage: 200 MILLIGRAM, CYCLICAL
     Route: 042
     Dates: start: 20180511, end: 20180703

REACTIONS (7)
  - Anaemia [Not Recovered/Not Resolved]
  - Renal failure [Not Recovered/Not Resolved]
  - Purpura [Not Recovered/Not Resolved]
  - Hypoproteinaemia [Not Recovered/Not Resolved]
  - Nephrotic syndrome [Not Recovered/Not Resolved]
  - Nephropathy toxic [Not Recovered/Not Resolved]
  - Oedema due to renal disease [Not Recovered/Not Resolved]

NARRATIVE: CASE EVENT DATE: 20180705
